FAERS Safety Report 19429831 (Version 1)
Quarter: 2021Q2

REPORT INFORMATION
  Report Type: Spontaneous
  Country: FR (occurrence: FR)
  Receive Date: 20210617
  Receipt Date: 20210617
  Transmission Date: 20210717
  Serious: Yes (Hospitalization, Congenital Anomaly)
  Sender: FDA-Public Use
  Company Number: FR-TEVA-2021-FR-1922617

PATIENT
  Age: 0 Year
  Sex: Female

DRUGS (2)
  1. OXALIPLATINE [Suspect]
     Active Substance: OXALIPLATIN
     Indication: COLON CANCER
     Dosage: 12 CURES?160 MG *6, 145*2, 80*4 , UNIT DOSE : 81 MG , THE SUSPECT MEDICATION WAS TAKEN BY THE FATHER
     Route: 050
     Dates: start: 20171116, end: 20180419
  2. FLUOROURACILE [Suspect]
     Active Substance: FLUOROURACIL
     Indication: COLON CANCER
     Dosage: 5300 MG ,  THE SUSPECT MEDICATION WAS TAKEN BY THE FATHER
     Route: 050
     Dates: start: 20171116, end: 20180419

REACTIONS (1)
  - Cleft palate [Not Recovered/Not Resolved]

NARRATIVE: CASE EVENT DATE: 20210504
